FAERS Safety Report 9164792 (Version 1)
Quarter: 2013Q1

REPORT INFORMATION
  Report Type: Spontaneous
  Country: US (occurrence: US)
  Receive Date: 20130315
  Receipt Date: 20130315
  Transmission Date: 20140127
  Serious: Yes (Other)
  Sender: FDA-Public Use
  Company Number: US-PFIZER INC-2013085507

PATIENT
  Age: 42 Year
  Sex: Female
  Weight: 72.56 kg

DRUGS (6)
  1. LYRICA [Suspect]
     Dosage: UNK
  2. GABAPENTIN [Suspect]
     Dosage: UNK
  3. TOPAMAX [Suspect]
     Indication: MIGRAINE
     Dosage: 100 MG, 1X/DAY (50MG, 2 IN 1 DAY)
     Route: 048
     Dates: end: 2012
  4. TOPAMAX [Suspect]
     Indication: FIBROMYALGIA
  5. LEXAPRO [Suspect]
     Dosage: UNK
  6. SYNTHROID [Concomitant]
     Dosage: 175 UG, IN 1 DAY
     Dates: start: 1997

REACTIONS (12)
  - Nephrolithiasis [Unknown]
  - Musculoskeletal pain [Unknown]
  - Depression [Unknown]
  - Neoplasm [Unknown]
  - Abnormal loss of weight [Unknown]
  - Memory impairment [Unknown]
  - Influenza like illness [Unknown]
  - Nausea [Unknown]
  - Vomiting [Unknown]
  - Migraine [Unknown]
  - Alopecia [Unknown]
  - Hair texture abnormal [Unknown]
